FAERS Safety Report 18232932 (Version 1)
Quarter: 2020Q3

REPORT INFORMATION
  Report Type: Spontaneous
  Country: JP (occurrence: JP)
  Receive Date: 20200904
  Receipt Date: 20200904
  Transmission Date: 20201103
  Serious: Yes (Other)
  Sender: FDA-Public Use
  Company Number: JP-PFIZER INC-2020340195

PATIENT

DRUGS (1)
  1. ANAEMETRO [Suspect]
     Active Substance: METRONIDAZOLE
     Dosage: UNK

REACTIONS (3)
  - Encephalopathy [Recovering/Resolving]
  - Asterixis [Recovering/Resolving]
  - Dysarthria [Recovering/Resolving]
